FAERS Safety Report 18846368 (Version 2)
Quarter: 2021Q1

REPORT INFORMATION
  Report Type: Spontaneous
  Country: NL (occurrence: NL)
  Receive Date: 20210204
  Receipt Date: 20210212
  Transmission Date: 20210419
  Serious: Yes (Other)
  Sender: FDA-Public Use
  Company Number: NL-PFIZER INC-2021074218

PATIENT
  Age: 72 Year
  Sex: Male

DRUGS (3)
  1. INSPRA [Suspect]
     Active Substance: EPLERENONE
     Dosage: UNK
     Route: 065
  2. ENTRESTO [Suspect]
     Active Substance: SACUBITRIL\VALSARTAN
     Indication: LEFT VENTRICULAR DYSFUNCTION
     Dosage: 1 DF, 2X/DAY
     Route: 065
     Dates: start: 201807
  3. CODEINE [Concomitant]
     Active Substance: CODEINE
     Dosage: USING FOR NIGHT
     Route: 065

REACTIONS (3)
  - Dizziness [Unknown]
  - Left ventricular dysfunction [Unknown]
  - Cough [Recovering/Resolving]

NARRATIVE: CASE EVENT DATE: 2020
